FAERS Safety Report 10878287 (Version 1)
Quarter: 2015Q1

REPORT INFORMATION
  Report Type: Spontaneous
  Country: US (occurrence: US)
  Receive Date: 20150302
  Receipt Date: 20150302
  Transmission Date: 20150721
  Serious: No
  Sender: FDA-Public Use
  Company Number: US-ABBVIE-14P-163-1276157-00

PATIENT
  Age: 8 Year
  Sex: Male

DRUGS (1)
  1. ANDROGEL [Suspect]
     Active Substance: TESTOSTERONE
     Indication: EXPOSURE VIA FATHER
     Route: 062

REACTIONS (2)
  - Virilism [Not Recovered/Not Resolved]
  - Accidental exposure to product [Not Recovered/Not Resolved]
